FAERS Safety Report 4356476-1 (Version None)
Quarter: 2004Q2

REPORT INFORMATION
  Report Type: 
  Country: None (occurrence: None)
  Receive Date: 20040506
  Receipt Date: 20040421
  Transmission Date: 20050107
  Serious: Yes (Disabling)
  Sender: FDA-Public Use
  Company Number: 200206324

PATIENT
  Age: 43 Year
  Sex: Female
  Weight: 58.9676 kg

DRUGS (4)
  1. BOTOX PURIFIED NEUROTOXIN COMPLEX [Suspect]
     Indication: MIGRAINE
     Dosage: 92 UNITS PRN IM
     Route: 030
     Dates: start: 20010507
  2. BOTOX PURIFIED NEUROTOXIN COMPLEX [Suspect]
     Indication: SKIN WRINKLING
     Dosage: 92 UNITS PRN IM
     Route: 030
     Dates: start: 20010507
  3. IMIREX ^GLAXO-WELLCOME^ [Concomitant]
  4. FIORINAL [Concomitant]

REACTIONS (35)
  - ABDOMINAL PAIN [None]
  - ALLODYNIA [None]
  - ARTHRALGIA [None]
  - BEDRIDDEN [None]
  - BRONCHITIS [None]
  - COGNITIVE DISORDER [None]
  - CONSTIPATION [None]
  - COUGH [None]
  - DIARRHOEA [None]
  - DISCOMFORT [None]
  - DRUG INEFFECTIVE [None]
  - DRUG TOXICITY [None]
  - FATIGUE [None]
  - FIBROMYALGIA [None]
  - FLATULENCE [None]
  - HAEMATOCHEZIA [None]
  - HAEMORRHOIDS [None]
  - HEADACHE [None]
  - HEART RATE IRREGULAR [None]
  - HYPERACUSIS [None]
  - INSOMNIA [None]
  - MIGRAINE [None]
  - MUSCLE SPASMS [None]
  - MUSCULAR WEAKNESS [None]
  - MYALGIA [None]
  - NAUSEA [None]
  - NECK PAIN [None]
  - NIGHT SWEATS [None]
  - PAROSMIA [None]
  - PROCTALGIA [None]
  - TENDERNESS [None]
  - TREMOR [None]
  - URTICARIA [None]
  - VISION BLURRED [None]
  - WEIGHT INCREASED [None]
